FAERS Safety Report 4863555-9 (Version None)
Quarter: 2005Q4

REPORT INFORMATION
  Report Type: 
  Country: None (occurrence: None)
  Receive Date: 20051222
  Receipt Date: 20050425
  Transmission Date: 20060501
  Serious: No
  Sender: FDA-Public Use
  Company Number: US-GLAXOSMITHKLINE-A0555576A

PATIENT
  Sex: Female

DRUGS (5)
  1. FLONASE [Suspect]
     Indication: DRUG USE FOR UNKNOWN INDICATION
     Dosage: 100MG PER DAY
     Route: 045
     Dates: start: 20050316
  2. PAXIL [Concomitant]
  3. CLONOPIN [Concomitant]
  4. ROBITUSSIN DM [Concomitant]
  5. SPIRIVA [Concomitant]

REACTIONS (1)
  - DRUG SCREEN POSITIVE [None]
